FAERS Safety Report 7359440-3 (Version None)
Quarter: 2011Q1

REPORT INFORMATION
  Report Type: 
  Country: None (occurrence: None)
  Receive Date: 20110225
  Receipt Date: 20101111
  Transmission Date: 20110831
  Serious: No
  Sender: FDA-Public Use
  Company Number: 318673

PATIENT
  Age: 72 Year
  Sex: Male

DRUGS (5)
  1. LANTUS [Suspect]
     Indication: TYPE 2 DIABETES MELLITUS
     Dosage: SUBCUTANEOUS
     Route: 058
  2. PRANDIN [Suspect]
     Indication: TYPE 2 DIABETES MELLITUS
     Dosage: ORAL
     Route: 048
  3. VICTOZA [Suspect]
     Indication: TYPE 2 DIABETES MELLITUS
     Dosage: SUBCUTANEOUS
     Route: 058
     Dates: start: 20100420
  4. LEVEMIR [Suspect]
     Indication: TYPE 2 DIABETES MELLITUS
     Dosage: 32 U, QD, SUBCUTANEOUS, 30 U, QD, SUBCUTANEOUS
     Route: 058
     Dates: start: 20100501
  5. LEVEMIR [Suspect]
     Indication: TYPE 2 DIABETES MELLITUS
     Dosage: 32 U, QD, SUBCUTANEOUS, 30 U, QD, SUBCUTANEOUS
     Route: 058
     Dates: start: 20100101

REACTIONS (1)
  - PRURITUS GENERALISED [None]
